FAERS Safety Report 24690983 (Version 1)
Quarter: 2024Q4

REPORT INFORMATION
  Report Type: Spontaneous
  Country: GB (occurrence: GB)
  Receive Date: 20241203
  Receipt Date: 20241203
  Transmission Date: 20250115
  Serious: Yes (Hospitalization)
  Sender: MYLAN
  Company Number: GB-MYLANLABS-2024M1106859

PATIENT
  Age: 69 Year
  Sex: Male

DRUGS (5)
  1. WARFARIN [Suspect]
     Active Substance: WARFARIN
     Indication: Atrial fibrillation
     Dosage: UNK
     Route: 065
  2. TRANEXAMIC ACID [Suspect]
     Active Substance: TRANEXAMIC ACID
     Indication: Haematuria
     Dosage: UNK
     Route: 065
  3. TRANEXAMIC ACID [Suspect]
     Active Substance: TRANEXAMIC ACID
     Dosage: ONE WEEK?TRIALED
     Route: 065
  4. ALUM [Suspect]
     Active Substance: POTASSIUM ALUM
     Indication: Haematuria
     Dosage: UNK
     Route: 065
  5. ETHAMSYLATE [Suspect]
     Active Substance: ETHAMSYLATE
     Indication: Haematuria
     Dosage: UNK UNK, QW, ONE WEEK?TRIALED
     Route: 065

REACTIONS (3)
  - Haematuria [Recovered/Resolved]
  - Rectal haemorrhage [Recovered/Resolved]
  - Drug ineffective [Unknown]
